FAERS Safety Report 5844268-3 (Version None)
Quarter: 2008Q3

REPORT INFORMATION
  Report Type: 
  Country: None (occurrence: None)
  Receive Date: 20080813
  Receipt Date: 20080729
  Transmission Date: 20090109
  Serious: Yes (Other)
  Sender: FDA-Public Use
  Company Number: IT-GENENTECH-262563

PATIENT
  Sex: Female

DRUGS (5)
  1. AVASTIN [Suspect]
     Indication: COLON CANCER
     Dosage: 325 MG, UNK
     Route: 042
     Dates: start: 20080428
  2. AVASTIN [Suspect]
     Dosage: 375 MG, UNK
  3. IRINOTECAN HCL [Concomitant]
     Indication: DRUG USE FOR UNKNOWN INDICATION
  4. FLUOROURACIL [Concomitant]
     Indication: DRUG USE FOR UNKNOWN INDICATION
     Dosage: 2870 MG, UNK
  5. FLUOROURACIL [Concomitant]
     Dosage: 2730 MG, UNK

REACTIONS (3)
  - ANAEMIA [None]
  - DIARRHOEA [None]
  - NEUTROPENIA [None]
